FAERS Safety Report 8897060 (Version 1)
Quarter: 2012Q4

REPORT INFORMATION
  Report Type: Spontaneous
  Country: US (occurrence: None)
  Receive Date: 20121031
  Receipt Date: 20121031
  Transmission Date: 20130627
  Serious: Yes (Death, Other)
  Sender: FDA-Public Use
  Company Number: 2012MA012503

PATIENT
  Age: 56 Year
  Sex: Female

DRUGS (6)
  1. LEVETIRACETAM [Suspect]
     Indication: CONVULSION PROPHYLAXIS
  2. ACETAMINOPHEN [Concomitant]
  3. BUTALBITAL [Concomitant]
  4. DULOXETINE [Concomitant]
  5. METAXALONE [Concomitant]
  6. VERAPAMIL [Concomitant]

REACTIONS (4)
  - Completed suicide [None]
  - Respiratory disorder [None]
  - Drug level increased [None]
  - Overdose [None]
